FAERS Safety Report 8488419-3 (Version None)
Quarter: 2012Q3

REPORT INFORMATION
  Report Type: 
  Country: None (occurrence: None)
  Receive Date: 20120705
  Receipt Date: 20120621
  Transmission Date: 20120928
  Serious: Yes (Life-Threatening)
  Sender: FDA-Public Use
  Company Number: IT-CELGENEUS-083-21660-12063180

PATIENT
  Sex: Female

DRUGS (1)
  1. ABRAXANE [Suspect]
     Route: 041

REACTIONS (1)
  - ANAPHYLACTIC SHOCK [None]
